FAERS Safety Report 5180933-1 (Version None)
Quarter: 2006Q4

REPORT INFORMATION
  Report Type: 
  Country: None (occurrence: None)
  Receive Date: 20061218
  Receipt Date: 20061218
  Transmission Date: 20070319
  Serious: Yes (Death, Life-Threatening, Hospitalization)
  Sender: FDA-Public Use
  Company Number: None

PATIENT
  Sex: Male

DRUGS (24)
  1. AVASTIN [Suspect]
     Indication: COLON CANCER
     Dosage: 325MG   EVERY TWO WEEKS   IV DRIP
     Route: 041
     Dates: start: 20050627, end: 20050907
  2. AVASTIN [Suspect]
     Indication: METASTASES TO LIVER
     Dosage: 325MG   EVERY TWO WEEKS   IV DRIP
     Route: 041
     Dates: start: 20050627, end: 20050907
  3. AVASTIN [Suspect]
     Indication: COLON CANCER
     Dosage: 325MG   EVERY TWO WEEKS   IV DRIP
     Route: 041
     Dates: start: 20051212, end: 20060327
  4. AVASTIN [Suspect]
     Indication: METASTASES TO LIVER
     Dosage: 325MG   EVERY TWO WEEKS   IV DRIP
     Route: 041
     Dates: start: 20051212, end: 20060327
  5. FOLFOX-6 [Concomitant]
  6. IMDUR [Concomitant]
  7. METOPROLOL SUCCINATE [Concomitant]
  8. WARFARIN SODIUM [Concomitant]
  9. EPO [Concomitant]
  10. AVELOX [Concomitant]
  11. FOLIC ACID [Concomitant]
  12. PHENERGAN EXPECTORANT W/ CODEINE [Concomitant]
  13. CEFTAZIDIME [Concomitant]
  14. ZOSYN [Concomitant]
  15. VANCOMYCIN [Concomitant]
  16. VFEND [Concomitant]
  17. ALBUTEROL/ATROVENT [Concomitant]
  18. MORPHINE [Concomitant]
  19. ZYVOX [Concomitant]
  20. MEROPENEM [Concomitant]
  21. BACTIM DS [Concomitant]
  22. VIT K [Concomitant]
  23. LOVENOX [Concomitant]
  24. OMEPRAZOLE [Concomitant]

REACTIONS (13)
  - ACUTE RESPIRATORY DISTRESS SYNDROME [None]
  - BRAIN DEATH [None]
  - DEEP VEIN THROMBOSIS [None]
  - DISSEMINATED INTRAVASCULAR COAGULATION [None]
  - FEBRILE NEUTROPENIA [None]
  - HAEMORRHAGIC CEREBRAL INFARCTION [None]
  - HYPERCOAGULATION [None]
  - JUGULAR VEIN THROMBOSIS [None]
  - MULTI-ORGAN FAILURE [None]
  - PNEUMONIA [None]
  - RENAL FAILURE ACUTE [None]
  - RENAL INFARCT [None]
  - SPLENIC INFARCTION [None]
